FAERS Safety Report 9236639 (Version 1)
Quarter: 2013Q2

REPORT INFORMATION
  Report Type: Spontaneous
  Country: US (occurrence: None)
  Receive Date: 20130415
  Receipt Date: 20130415
  Transmission Date: 20140414
  Serious: Yes (Other)
  Sender: FDA-Public Use
  Company Number: THQ2013A02737

PATIENT
  Age: 83 Year
  Sex: Male

DRUGS (3)
  1. LANSOPRAZOLE [Suspect]
     Indication: PRODUCT USED FOR UNKNOWN INDICATION
     Route: 048
     Dates: start: 2013
  2. ATENOLOL [Concomitant]
  3. RAMIPRIL [Concomitant]

REACTIONS (3)
  - Infected skin ulcer [None]
  - Pruritus [None]
  - Blister [None]
